FAERS Safety Report 17697436 (Version 1)
Quarter: 2020Q2

REPORT INFORMATION
  Report Type: Spontaneous
  Country: US (occurrence: US)
  Receive Date: 20200422
  Receipt Date: 20200422
  Transmission Date: 20200714
  Serious: No
  Sender: FDA-Public Use
  Company Number: None

PATIENT
  Age: 57 Year
  Sex: Female
  Weight: 110.25 kg

DRUGS (6)
  1. ALL DAY ALLERGY [Suspect]
     Active Substance: CETIRIZINE HYDROCHLORIDE
     Indication: SINUSITIS
     Dosage: ?          QUANTITY:45 TABLET(S);?
     Route: 048
  2. ALL DAY ALLERGY [Suspect]
     Active Substance: CETIRIZINE HYDROCHLORIDE
     Indication: HYPERSENSITIVITY
     Dosage: ?          QUANTITY:45 TABLET(S);?
     Route: 048
  3. VITAMIN D 4000 MG [Concomitant]
  4. PRILOSEC [Concomitant]
     Active Substance: OMEPRAZOLE MAGNESIUM
  5. PAXIL [Concomitant]
     Active Substance: PAROXETINE HYDROCHLORIDE
  6. ILEVOTHYROXINE [Concomitant]

REACTIONS (4)
  - Anxiety [None]
  - Pruritus [None]
  - Diarrhoea [None]
  - Headache [None]

NARRATIVE: CASE EVENT DATE: 20200418
